FAERS Safety Report 7460701-8 (Version None)
Quarter: 2011Q2

REPORT INFORMATION
  Report Type: 
  Country: None (occurrence: None)
  Receive Date: 20110505
  Receipt Date: 20110502
  Transmission Date: 20111010
  Serious: Yes (Death)
  Sender: FDA-Public Use
  Company Number: BR-US-EMD SERONO, INC.-7057583

PATIENT
  Sex: Male

DRUGS (3)
  1. RIVOTRIL [Concomitant]
  2. FLUOXETINE [Concomitant]
  3. REBIF [Suspect]
     Indication: RELAPSING-REMITTING MULTIPLE SCLEROSIS
     Dates: start: 20020902, end: 20110428

REACTIONS (4)
  - DYSPNOEA [None]
  - DYSPHAGIA [None]
  - CARDIAC ARREST [None]
  - TRACHEAL DISORDER [None]
